FAERS Safety Report 9246401 (Version 1)
Quarter: 2013Q2

REPORT INFORMATION
  Report Type: Report from Study
  Country: AU (occurrence: US)
  Receive Date: 20130422
  Receipt Date: 20130422
  Transmission Date: 20140414
  Serious: Yes (Life-Threatening, Other)
  Sender: FDA-Public Use
  Company Number: AU-MERCK-1304USA008234

PATIENT
  Sex: 0

DRUGS (3)
  1. VORINOSTAT [Suspect]
     Dosage: 300 MG, QD X 16 DAYS IN 28 DAYS CYCLES
     Route: 048
  2. VORINOSTAT [Suspect]
     Dosage: 300 MG, QD X 16 DAYS IN 28 DAYS CYCLES
     Route: 048
  3. MARIZOMIB [Concomitant]
     Indication: NON-SMALL CELL LUNG CANCER
     Dosage: 0.15 MG/M2
     Route: 042

REACTIONS (1)
  - Thrombocytopenia [Unknown]
